FAERS Safety Report 10050952 (Version 4)
Quarter: 2014Q3

REPORT INFORMATION
  Report Type: Spontaneous
  Country: US (occurrence: US)
  Receive Date: 20140401
  Receipt Date: 20140912
  Transmission Date: 20150326
  Serious: Yes (Death, Life-Threatening, Hospitalization, Disabling)
  Sender: FDA-Public Use
  Company Number: US-GLAXOSMITHKLINE-A1067537A

PATIENT
  Age: 59 Year
  Sex: Female
  Weight: 51.8 kg

DRUGS (17)
  1. LACTULOSE. [Concomitant]
     Active Substance: LACTULOSE
  2. LEVAQUIN [Concomitant]
     Active Substance: LEVOFLOXACIN
  3. ASPIRIN. [Concomitant]
     Active Substance: ASPIRIN
  4. BACLOFEN. [Concomitant]
     Active Substance: BACLOFEN
  5. DEXAMETHASONE. [Concomitant]
     Active Substance: DEXAMETHASONE
  6. TYKERB [Suspect]
     Active Substance: LAPATINIB DITOSYLATE
     Indication: BREAST CANCER
     Dosage: 1250MG PER DAY
     Route: 048
     Dates: start: 20140202
  7. OXYCONTIN [Concomitant]
     Active Substance: OXYCODONE HYDROCHLORIDE
  8. SENOKOT [Concomitant]
     Active Substance: SENNOSIDES
  9. ZOFRAN [Concomitant]
     Active Substance: ONDANSETRON HYDROCHLORIDE
  10. MORPHINE [Concomitant]
     Active Substance: MORPHINE
  11. XELODA [Suspect]
     Active Substance: CAPECITABINE
     Dosage: 1500MG PER DAY
     Route: 048
     Dates: start: 20140202
  12. COMPAZINE [Concomitant]
     Active Substance: PROCHLORPERAZINE MALEATE
  13. ATIVAN [Concomitant]
     Active Substance: LORAZEPAM
  14. OXYCODONE [Concomitant]
     Active Substance: OXYCODONE
  15. PLAQUENIL [Concomitant]
     Active Substance: HYDROXYCHLOROQUINE SULFATE
  16. XGEVA [Concomitant]
     Active Substance: DENOSUMAB
  17. VITAMIN B12 [Concomitant]
     Active Substance: CYANOCOBALAMIN

REACTIONS (14)
  - Breast cancer metastatic [Fatal]
  - Oedema peripheral [Unknown]
  - Asthenia [Unknown]
  - Ecchymosis [Unknown]
  - Decubitus ulcer [Unknown]
  - Nausea [Unknown]
  - Dyspnoea [Unknown]
  - Escherichia urinary tract infection [Unknown]
  - Weight decreased [Unknown]
  - Speech disorder [Unknown]
  - Constipation [Unknown]
  - Performance status decreased [Unknown]
  - Oral candidiasis [Unknown]
  - Gait disturbance [Unknown]

NARRATIVE: CASE EVENT DATE: 20140206
